FAERS Safety Report 18078470 (Version 1)
Quarter: 2020Q3

REPORT INFORMATION
  Report Type: Spontaneous
  Country: US (occurrence: US)
  Receive Date: 20200727
  Receipt Date: 20200727
  Transmission Date: 20201103
  Serious: Yes (Other)
  Sender: FDA-Public Use
  Company Number: None

PATIENT
  Age: 61 Year
  Sex: Female
  Weight: 93.6 kg

DRUGS (5)
  1. NOREPINEPHRINE DRIP [Concomitant]
     Dates: start: 20200724
  2. FENTYL DRIP [Concomitant]
     Dates: start: 20200724
  3. REMDESIVIR. [Suspect]
     Active Substance: REMDESIVIR
     Indication: COVID-19
     Dosage: ?          OTHER FREQUENCY:ONCE;?
     Route: 040
     Dates: start: 20200724, end: 20200725
  4. PROPOFOL DRIP [Concomitant]
     Active Substance: PROPOFOL
     Dates: start: 20200724
  5. ROCURONIUM DRIP [Concomitant]
     Dates: start: 20200724

REACTIONS (1)
  - Renal injury [None]

NARRATIVE: CASE EVENT DATE: 20200725
